FAERS Safety Report 8072228-3 (Version None)
Quarter: 2012Q1

REPORT INFORMATION
  Report Type: 
  Country: None (occurrence: None)
  Receive Date: 20120126
  Receipt Date: 20120123
  Transmission Date: 20120608
  Serious: No
  Sender: FDA-Public Use
  Company Number: US-PFIZER INC-2012018597

PATIENT
  Sex: Male

DRUGS (8)
  1. LOSARTAN [Concomitant]
     Indication: CARDIAC DISORDER
     Dosage: UNK
  2. VITAMIN D [Concomitant]
     Dosage: UNK
  3. LIPITOR [Suspect]
     Dosage: UNK
  4. ACETYLSALICYLIC ACID [Concomitant]
     Indication: CARDIAC DISORDER
     Dosage: UNK
  5. COENZYME Q10 [Concomitant]
     Dosage: UNK
  6. METOPROLOL [Concomitant]
     Indication: CARDIAC DISORDER
     Dosage: UNK
  7. ZANTAC [Concomitant]
     Indication: GASTROOESOPHAGEAL REFLUX DISEASE
     Dosage: UNK
  8. BUPROPION [Concomitant]
     Dosage: UNK

REACTIONS (2)
  - ANXIETY [None]
  - MYALGIA [None]
